FAERS Safety Report 12966191 (Version 2)
Quarter: 2016Q4

REPORT INFORMATION
  Report Type: Spontaneous
  Country: US (occurrence: US)
  Receive Date: 20161122
  Receipt Date: 20161125
  Transmission Date: 20170207
  Serious: Yes (Hospitalization)
  Sender: FDA-Public Use
  Company Number: US-ALLERGAN-1673750US

PATIENT
  Age: 34 Year
  Sex: Male
  Weight: 78.5 kg

DRUGS (1)
  1. DALVANCE [Suspect]
     Active Substance: DALBAVANCIN
     Indication: FURUNCLE
     Dosage: UNK, SINGLE
     Route: 042
     Dates: start: 20160731, end: 20160731

REACTIONS (7)
  - Walking disability [Not Recovered/Not Resolved]
  - Constipation [Unknown]
  - Skin infection [Not Recovered/Not Resolved]
  - Furuncle [Not Recovered/Not Resolved]
  - Pain [Not Recovered/Not Resolved]
  - Off label use [Unknown]
  - Hypokinesia [Not Recovered/Not Resolved]

NARRATIVE: CASE EVENT DATE: 20160731
